FAERS Safety Report 21903543 (Version 2)
Quarter: 2023Q1

REPORT INFORMATION
  Report Type: Spontaneous
  Country: PT (occurrence: None)
  Receive Date: 20230124
  Receipt Date: 20230224
  Transmission Date: 20230418
  Serious: Yes (Other)
  Sender: FDA-Public Use
  Company Number: 2023A010881

PATIENT
  Age: 88 Year
  Sex: Male

DRUGS (5)
  1. BUDESONIDE\FORMOTEROL\GLYCOPYRROLATE [Suspect]
     Active Substance: BUDESONIDE\FORMOTEROL\GLYCOPYRROLATE
     Indication: Respiratory failure
     Dosage: 2 MORNING APPS AND 2 EVENING APPLICATIONS (IF YOU DO NOT HAVE DIFFICULTY BREATHING ONLY DO AT NIGHT)
     Route: 055
     Dates: start: 202210, end: 20230106
  2. LISINOPRIL [Concomitant]
     Active Substance: LISINOPRIL
     Route: 048
  3. FUROSEMIDE [Concomitant]
     Active Substance: FUROSEMIDE
  4. ATORVASTATIN [Concomitant]
     Active Substance: ATORVASTATIN
     Route: 048
  5. EDOXABAN [Concomitant]
     Active Substance: EDOXABAN
     Route: 048

REACTIONS (21)
  - Choking [Unknown]
  - Pollakiuria [Unknown]
  - Weight decreased [Unknown]
  - Vision blurred [Unknown]
  - Condition aggravated [Unknown]
  - Chapped lips [Recovered/Resolved]
  - Pruritus allergic [Unknown]
  - Dyspepsia [Unknown]
  - Chills [Unknown]
  - Heart rate irregular [Unknown]
  - Decreased appetite [Unknown]
  - Dysphonia [Unknown]
  - Contusion [Unknown]
  - Dizziness [Unknown]
  - Palpitations [Unknown]
  - Nausea [Unknown]
  - Headache [Recovered/Resolved]
  - Throat irritation [Unknown]
  - Cough [Unknown]
  - Muscle spasms [Unknown]
  - Dry mouth [Unknown]

NARRATIVE: CASE EVENT DATE: 20221001
